FAERS Safety Report 12465531 (Version 1)
Quarter: 2016Q2

REPORT INFORMATION
  Report Type: Spontaneous
  Country: BR (occurrence: BR)
  Receive Date: 20160614
  Receipt Date: 20160614
  Transmission Date: 20160815
  Serious: Yes (Other)
  Sender: FDA-Public Use
  Company Number: BR-SA-2016SA108131

PATIENT
  Age: 52 Year
  Sex: Female
  Weight: 78 kg

DRUGS (6)
  1. CLEXANE [Suspect]
     Active Substance: ENOXAPARIN SODIUM
     Route: 058
     Dates: start: 20160517
  2. PURAN [Suspect]
     Active Substance: LEVOTHYROXINE SODIUM
     Route: 048
     Dates: start: 20160517
  3. OPRAZON [Suspect]
     Active Substance: OMEPRAZOLE
     Route: 042
     Dates: start: 20160517
  4. MOTILIUM [Suspect]
     Active Substance: DOMPERIDONE
     Route: 048
     Dates: start: 20160517
  5. KEFAZOL [Suspect]
     Active Substance: CEFAZOLIN SODIUM
     Route: 042
     Dates: start: 20160517
  6. NOVALGIN [Suspect]
     Active Substance: METAMIZOLE SODIUM
     Route: 042
     Dates: start: 20160517

REACTIONS (2)
  - Flushing [Recovered/Resolved]
  - Erythema [Recovered/Resolved]

NARRATIVE: CASE EVENT DATE: 20160517
